FAERS Safety Report 13332707 (Version 1)
Quarter: 2017Q1

REPORT INFORMATION
  Report Type: Spontaneous
  Country: US (occurrence: US)
  Receive Date: 20170314
  Receipt Date: 20170314
  Transmission Date: 20170428
  Serious: No
  Sender: FDA-Public Use
  Company Number: US-PFIZER INC-2017101930

PATIENT
  Sex: Female

DRUGS (1)
  1. XELJANZ [Suspect]
     Active Substance: TOFACITINIB CITRATE
     Dosage: 5 MG, UNK

REACTIONS (13)
  - Streptococcal infection [Recovered/Resolved]
  - Dyspnoea [Unknown]
  - Arthralgia [Unknown]
  - Insomnia [Unknown]
  - Cough [Unknown]
  - Dyspepsia [Unknown]
  - Musculoskeletal stiffness [Unknown]
  - Myalgia [Unknown]
  - Constipation [Unknown]
  - Paraesthesia [Unknown]
  - Asthenia [Unknown]
  - Fatigue [Unknown]
  - Swelling [Unknown]
